FAERS Safety Report 6020947-2 (Version None)
Quarter: 2008Q4

REPORT INFORMATION
  Report Type: 
  Country: None (occurrence: None)
  Receive Date: 20081229
  Receipt Date: 20081218
  Transmission Date: 20090506
  Serious: Yes (Death, Hospitalization)
  Sender: FDA-Public Use
  Company Number: US-NOVOPROD-274816

PATIENT
  Sex: Female
  Weight: 72.4 kg

DRUGS (2)
  1. NORDITROPIN NORDIFLEX [Suspect]
     Indication: HAEMODIALYSIS
     Route: 058
     Dates: start: 20080421
  2. GLYBURIDE [Concomitant]
     Indication: TYPE 2 DIABETES MELLITUS
     Dosage: 10 MG, QD
     Dates: start: 20080206

REACTIONS (1)
  - HYPERGLYCAEMIA [None]
